FAERS Safety Report 21365488 (Version 1)
Quarter: 2022Q3

REPORT INFORMATION
  Report Type: Report from Study
  Country: CN (occurrence: CN)
  Receive Date: 20220922
  Receipt Date: 20220922
  Transmission Date: 20221026
  Serious: Yes (Hospitalization)
  Sender: FDA-Public Use
  Company Number: CN-BAXTER-2021BAX016641

PATIENT
  Age: 50 Year
  Sex: Female

DRUGS (8)
  1. CYCLOPHOSPHAMIDE [Suspect]
     Active Substance: CYCLOPHOSPHAMIDE
     Indication: Triple negative breast cancer
     Dosage: 600 MG/M2, ONCE IN 2 WEEK
     Route: 042
     Dates: start: 20200827
  2. CYCLOPHOSPHAMIDE [Suspect]
     Active Substance: CYCLOPHOSPHAMIDE
     Dosage: 1000 MG, PRN, MOST RECENT DOSE PRIOR TO SAE
     Route: 042
     Dates: start: 20200911, end: 20200911
  3. EPIRUBICIN [Suspect]
     Active Substance: EPIRUBICIN
     Indication: Triple negative breast cancer
     Dosage: 90 MG/M2, EVERY 2 WEEK
     Route: 042
     Dates: start: 20200827
  4. EPIRUBICIN [Suspect]
     Active Substance: EPIRUBICIN
     Dosage: 150 MG, PRN, MOST RECENT DOSE PRIOR TO SAE
     Route: 042
     Dates: start: 20200911, end: 20200911
  5. ATEZOLIZUMAB [Suspect]
     Active Substance: ATEZOLIZUMAB
     Indication: Triple negative breast cancer
     Dosage: 840 MILLIGRAM, EVERY 2 WEEK
     Route: 041
     Dates: start: 20200604
  6. ATEZOLIZUMAB [Suspect]
     Active Substance: ATEZOLIZUMAB
     Dosage: 840 MG, PRN, MOST RECENT DOSE PRIOR TO SAE
     Route: 041
     Dates: start: 20200911, end: 20200911
  7. PACLITAXEL [Suspect]
     Active Substance: PACLITAXEL
     Indication: Triple negative breast cancer
     Dosage: 80 MG/M2, 1 IN 1 WEEK
     Route: 042
     Dates: start: 20200604
  8. PACLITAXEL [Suspect]
     Active Substance: PACLITAXEL
     Dosage: 135 MG, PRN, MOST RECENT DOSE PRIOR TO SAE
     Route: 042
     Dates: start: 20200820, end: 20200820

REACTIONS (1)
  - Infusion related reaction [Recovered/Resolved]

NARRATIVE: CASE EVENT DATE: 20200911
